FAERS Safety Report 5208093-9 (Version None)
Quarter: 2006Q4

REPORT INFORMATION
  Report Type: 
  Country: None (occurrence: None)
  Receive Date: 20061027
  Receipt Date: 20060919
  Transmission Date: 20070319
  Serious: No
  Sender: FDA-Public Use
  Company Number: 200617901US

PATIENT
  Age: 78 Year
  Sex: Female

DRUGS (1)
  1. KETEK [Suspect]
     Dates: start: 20060501

REACTIONS (1)
  - DIARRHOEA [None]
